FAERS Safety Report 7324039-1 (Version None)
Quarter: 2011Q1

REPORT INFORMATION
  Report Type: 
  Country: None (occurrence: None)
  Receive Date: 20110217
  Receipt Date: 20100810
  Transmission Date: 20110831
  Serious: Yes (Other)
  Sender: FDA-Public Use
  Company Number: 014733

PATIENT
  Sex: Male
  Weight: 127.0072 kg

DRUGS (4)
  1. PHENERGAN [Concomitant]
  2. INSULIN [Concomitant]
  3. CIMZIA [Suspect]
     Indication: CROHN'S DISEASE
     Dosage: 400 MG 1 X  4 WEEKS, SUBCUTANEOUS
     Route: 058
     Dates: start: 20090617
  4. MURAN [Concomitant]

REACTIONS (3)
  - DEAFNESS BILATERAL [None]
  - EAR INFECTION [None]
  - OTORRHOEA [None]
